FAERS Safety Report 22868059 (Version 2)
Quarter: 2024Q1

REPORT INFORMATION
  Report Type: Spontaneous
  Country: EG (occurrence: EG)
  Receive Date: 20230825
  Receipt Date: 20240220
  Transmission Date: 20240409
  Serious: Yes (Life-Threatening, Other)
  Sender: FDA-Public Use
  Company Number: EG-NOVOPROD-1103768

PATIENT
  Age: 864 Month
  Sex: Female
  Weight: 71.5 kg

DRUGS (2)
  1. NOVORAPID [Suspect]
     Active Substance: INSULIN ASPART
     Indication: Diabetes mellitus
     Dosage: UNK
  2. TRESIBA [Suspect]
     Active Substance: INSULIN DEGLUDEC
     Indication: Diabetes mellitus
     Dosage: UNK

REACTIONS (4)
  - Oesophageal variceal ligation [Not Recovered/Not Resolved]
  - Hepatitis C [Recovered/Resolved]
  - Hepatic cirrhosis [Unknown]
  - Weight decreased [Unknown]
